FAERS Safety Report 19801563 (Version 2)
Quarter: 2021Q3

REPORT INFORMATION
  Report Type: Other
  Country: US (occurrence: US)
  Receive Date: 20210908
  Receipt Date: 20210924
  Transmission Date: 20211014
  Serious: Yes (Other)
  Sender: FDA-Public Use
  Company Number: US-INTERCEPT-PM2021002642

PATIENT
  Age: 45 Year
  Sex: Male
  Weight: 105.22 kg

DRUGS (5)
  1. BUDESONIDE. [Concomitant]
     Active Substance: BUDESONIDE
     Dosage: 3 MILLIGRAM, BID
  2. NORMAL SALINE [Concomitant]
     Active Substance: SODIUM CHLORIDE
     Dosage: 500 MILLILITER
     Route: 042
  3. URSO [Concomitant]
     Active Substance: URSODIOL
     Dosage: 1500 MILLIGRAM, QD
  4. OCALIVA [Suspect]
     Active Substance: OBETICHOLIC ACID
     Indication: PRIMARY BILIARY CHOLANGITIS
     Dosage: 10 MILLIGRAM, QD
     Route: 048
     Dates: start: 20180524
  5. MYFORTIC [Concomitant]
     Active Substance: MYCOPHENOLATE SODIUM
     Dosage: 360 MILLIGRAM, BID

REACTIONS (3)
  - Biopsy liver [Recovered/Resolved]
  - Hepatic fibrosis [Unknown]
  - Liver function test abnormal [Unknown]

NARRATIVE: CASE EVENT DATE: 20210820
